FAERS Safety Report 7359160-5 (Version None)
Quarter: 2011Q1

REPORT INFORMATION
  Report Type: 
  Country: None (occurrence: None)
  Receive Date: 20110317
  Receipt Date: 20110215
  Transmission Date: 20110831
  Serious: No
  Sender: FDA-Public Use
  Company Number: US-BAYER-2011-015941

PATIENT
  Sex: Female
  Weight: 63 kg

DRUGS (2)
  1. ALEVE (CAPLET) [Suspect]
     Indication: MYALGIA
     Dosage: 4 DF IN TOTAL
     Route: 048
     Dates: start: 20110214, end: 20110214
  2. ALEVE (CAPLET) [Suspect]
     Indication: MUSCLE STRAIN

REACTIONS (1)
  - NO ADVERSE EVENT [None]
